FAERS Safety Report 16468483 (Version 1)
Quarter: 2019Q2

REPORT INFORMATION
  Report Type: Spontaneous
  Country: US (occurrence: US)
  Receive Date: 20190514
  Receipt Date: 20190514
  Transmission Date: 20190711
  Serious: No
  Sender: FDA-Public Use
  Company Number: None

PATIENT
  Age: 69 Year
  Sex: Male

DRUGS (1)
  1. ENBREL [Suspect]
     Active Substance: ETANERCEPT
     Indication: PSORIATIC ARTHROPATHY
     Dosage: ?          OTHER FREQUENCY:UNKNOWN;?
     Route: 058
     Dates: start: 201902

REACTIONS (5)
  - Therapy cessation [None]
  - Pain in extremity [None]
  - Drug ineffective [None]
  - Skin exfoliation [None]
  - Arthralgia [None]

NARRATIVE: CASE EVENT DATE: 20190514
